FAERS Safety Report 9300365 (Version 1)
Quarter: 2013Q2

REPORT INFORMATION
  Report Type: Report from Study
  Country: US (occurrence: US)
  Receive Date: 20130521
  Receipt Date: 20130521
  Transmission Date: 20140414
  Serious: Yes (Other)
  Sender: FDA-Public Use
  Company Number: US-JNJFOC-20130507515

PATIENT
  Age: 23 Year
  Sex: 0

DRUGS (1)
  1. REMICADE [Suspect]
     Indication: COLITIS ULCERATIVE
     Route: 042

REACTIONS (5)
  - Immune system disorder [Unknown]
  - Suicidal ideation [Unknown]
  - Influenza [Unknown]
  - Conjunctivitis infective [Unknown]
  - Ear infection [Unknown]
